FAERS Safety Report 4337435-1 (Version None)
Quarter: 2004Q2

REPORT INFORMATION
  Report Type: 
  Country: None (occurrence: None)
  Receive Date: 20040408
  Receipt Date: 20040106
  Transmission Date: 20050107
  Serious: Yes (Hospitalization)
  Sender: FDA-Public Use
  Company Number: 230009K04USA

PATIENT
  Age: 39 Year
  Sex: Female

DRUGS (1)
  1. REBIF [Suspect]
     Dosage: 22 MCG,
     Dates: start: 20031119

REACTIONS (1)
  - MULTIPLE SCLEROSIS RELAPSE [None]
